FAERS Safety Report 11836890 (Version 1)
Quarter: 2015Q4

REPORT INFORMATION
  Report Type: Spontaneous
  Country: CO (occurrence: CO)
  Receive Date: 20151215
  Receipt Date: 20151215
  Transmission Date: 20160305
  Serious: Yes (Hospitalization)
  Sender: FDA-Public Use
  Company Number: CO-009507513-1512COL007424

PATIENT
  Sex: Male

DRUGS (1)
  1. DIPROSPAN [Suspect]
     Active Substance: BETAMETHASONE DIPROPIONATE\BETAMETHASONE SODIUM PHOSPHATE
     Indication: BACK PAIN
     Dosage: UNK, UNKNOWN
     Route: 030
     Dates: start: 20151028

REACTIONS (1)
  - Arterial thrombosis [Recovered/Resolved]

NARRATIVE: CASE EVENT DATE: 20151104
